FAERS Safety Report 8564468-1 (Version None)
Quarter: 2012Q3

REPORT INFORMATION
  Report Type: 
  Country: None (occurrence: None)
  Receive Date: 20120803
  Receipt Date: 20120727
  Transmission Date: 20120928
  Serious: Yes (Other)
  Sender: FDA-Public Use
  Company Number: GB-NOVOPROD-356485

PATIENT
  Sex: Female

DRUGS (6)
  1. VICTOZA [Suspect]
     Indication: DIABETES MELLITUS
     Dosage: UNK
     Route: 058
     Dates: start: 20110621
  2. CETIRIZINE [Concomitant]
     Dosage: 10 MG, UNK
     Route: 048
  3. PLAVIX [Concomitant]
     Dosage: 75 MG, UNK
     Route: 048
  4. ATORVASTATIN [Concomitant]
     Dosage: 20 MG, UNK
     Route: 048
  5. MELOXICAM [Concomitant]
     Dosage: 7.5 MG, UNK
     Route: 048
  6. LOSARTAN POTASSIUM [Concomitant]
     Dosage: 50 MG, UNK
     Route: 048

REACTIONS (2)
  - RASH GENERALISED [None]
  - PRURITUS [None]
